FAERS Safety Report 13609347 (Version 1)
Quarter: 2017Q2

REPORT INFORMATION
  Report Type: Spontaneous
  Country: CH (occurrence: CH)
  Receive Date: 20170602
  Receipt Date: 20170602
  Transmission Date: 20170830
  Serious: Yes (Death)
  Sender: FDA-Public Use
  Company Number: CH-FRESENIUS KABI-FK201704747

PATIENT
  Age: 57 Year
  Sex: Male

DRUGS (4)
  1. IRINOTECAN (MANUFACTURER UNKNOWN) [Suspect]
     Active Substance: IRINOTECAN
     Indication: NEUROENDOCRINE CARCINOMA METASTATIC
     Route: 065
  2. CARBOPLATIN (MANUFACTURER UNKNOWN) [Suspect]
     Active Substance: CARBOPLATIN
     Indication: NEUROENDOCRINE CARCINOMA METASTATIC
     Route: 065
  3. FOLIC ACID (MANUFACTURER UNKNOWN) [Suspect]
     Active Substance: FOLIC ACID
     Indication: NEUROENDOCRINE CARCINOMA METASTATIC
     Route: 065
  4. FLUOROURACIL (MANUFACTURER UNKNOWN) [Suspect]
     Active Substance: FLUOROURACIL
     Indication: NEUROENDOCRINE CARCINOMA METASTATIC
     Route: 065

REACTIONS (1)
  - Disease progression [Fatal]
